FAERS Safety Report 14314541 (Version 2)
Quarter: 2018Q1

REPORT INFORMATION
  Report Type: Spontaneous
  Country: DE (occurrence: DE)
  Receive Date: 20171221
  Receipt Date: 20180115
  Transmission Date: 20180509
  Serious: Yes (Other)
  Sender: FDA-Public Use
  Company Number: DE-CELLTRION INC.-2017DE017261

PATIENT

DRUGS (1)
  1. INFLECTRA [Suspect]
     Active Substance: INFLIXIMAB-DYYB
     Indication: COLITIS ULCERATIVE
     Dosage: 300 MG, CYCLIC, EVERY 8 WEEKS
     Route: 042
     Dates: start: 20160901, end: 20171017

REACTIONS (2)
  - Product use issue [Unknown]
  - Facial paralysis [Unknown]

NARRATIVE: CASE EVENT DATE: 20170817
